FAERS Safety Report 17309152 (Version 1)
Quarter: 2020Q1

REPORT INFORMATION
  Report Type: Spontaneous
  Country: US (occurrence: US)
  Receive Date: 20200123
  Receipt Date: 20200123
  Transmission Date: 20200409
  Serious: No
  Sender: FDA-Public Use
  Company Number: US-LUPIN PHARMACEUTICALS INC.-2019-07269

PATIENT
  Age: 37 Year
  Sex: Female

DRUGS (4)
  1. LORAZEPAM. [Suspect]
     Active Substance: LORAZEPAM
     Indication: ANXIETY
     Dosage: 1 MILLIGRAM, EVERY 4 HOURS AS NEEDED
     Route: 065
  2. LURASIDONE [Suspect]
     Active Substance: LURASIDONE
     Indication: BIPOLAR DISORDER
     Dosage: 40 MILLIGRAM, QD
     Route: 065
  3. LURASIDONE [Suspect]
     Active Substance: LURASIDONE
     Dosage: 60 MILLIGRAM
     Route: 065
  4. LORAZEPAM. [Suspect]
     Active Substance: LORAZEPAM
     Dosage: ADDITIONAL DOSES
     Route: 065

REACTIONS (2)
  - Mania [Recovered/Resolved]
  - Somnolence [Unknown]
